FAERS Safety Report 5721553-7 (Version None)
Quarter: 2008Q2

REPORT INFORMATION
  Report Type: 
  Country: None (occurrence: None)
  Receive Date: 20080429
  Receipt Date: 20070404
  Transmission Date: 20081010
  Serious: No
  Sender: FDA-Public Use
  Company Number: US-ASTRAZENECA-2007UW04255

PATIENT
  Age: 67 Year
  Sex: Female
  Weight: 64.1 kg

DRUGS (5)
  1. NEXIUM [Suspect]
     Indication: OESOPHAGEAL DISORDER
     Route: 048
     Dates: start: 20070227, end: 20070305
  2. NEXIUM [Suspect]
     Route: 048
     Dates: start: 20070227, end: 20070305
  3. ZYRTEC [Concomitant]
  4. DIOVAN [Concomitant]
  5. BENICAR HCT [Concomitant]
     Indication: HYPERTENSION
     Dosage: 40/12.5
     Route: 048
     Dates: start: 20061201

REACTIONS (1)
  - RESTLESS LEGS SYNDROME [None]
